FAERS Safety Report 8263303-9 (Version None)
Quarter: 2012Q2

REPORT INFORMATION
  Report Type: 
  Country: None (occurrence: None)
  Receive Date: 20120405
  Receipt Date: 20120328
  Transmission Date: 20120825
  Serious: No
  Sender: FDA-Public Use
  Company Number: US-B.I. PHARMACEUTICALS,INC./RIDGEFIELD-2012-BP-05879BP

PATIENT
  Sex: Female

DRUGS (9)
  1. MULTAQ [Suspect]
     Indication: ATRIAL FIBRILLATION
     Route: 048
     Dates: start: 20120223
  2. NIACIN [Concomitant]
     Route: 048
     Dates: start: 20120313
  3. LOVASTATIN [Concomitant]
     Route: 048
  4. LEVOTHYROXINE SODIUM [Concomitant]
     Indication: HYPOTHYROIDISM
     Route: 048
  5. AMLODIPINE [Concomitant]
     Indication: HYPERTENSION
     Route: 048
  6. MELOXICAM [Concomitant]
     Route: 048
     Dates: end: 20120305
  7. ARICEPT [Concomitant]
     Indication: DEMENTIA
     Route: 048
     Dates: start: 20100101
  8. PRADAXA [Suspect]
     Indication: ATRIAL FIBRILLATION
     Dosage: 300 MG
     Route: 048
     Dates: start: 20120223, end: 20120313
  9. NIACIN [Concomitant]
     Route: 048
     Dates: end: 20120305

REACTIONS (5)
  - CONTUSION [None]
  - HYPERTENSION [None]
  - OEDEMA PERIPHERAL [None]
  - FLUSHING [None]
  - RASH [None]
